FAERS Safety Report 19429925 (Version 2)
Quarter: 2021Q2

REPORT INFORMATION
  Report Type: Spontaneous
  Country: CN (occurrence: CN)
  Receive Date: 20210617
  Receipt Date: 20210618
  Transmission Date: 20210717
  Serious: Yes (Other)
  Sender: FDA-Public Use
  Company Number: CN-TERSERA THERAPEUTICS LLC-2021TRS002777

PATIENT

DRUGS (2)
  1. BICALUTAMIDE. [Suspect]
     Active Substance: BICALUTAMIDE
     Indication: PROSTATE CANCER METASTATIC
     Dosage: 50 MG/TIME, ONCE A DAY, CONTINUALLY TREATING FOR 12 MONTHS
     Route: 048
  2. GOSERELIN [Suspect]
     Active Substance: GOSERELIN
     Indication: PROSTATE CANCER METASTATIC
     Dosage: 3.6 MG/TIME, ONCE/4 WEEKS, CONTINUALLY TREATING FOR 12 MONTHS.
     Route: 058

REACTIONS (1)
  - Hepatotoxicity [Unknown]
